FAERS Safety Report 4433182-6 (Version None)
Quarter: 2004Q3

REPORT INFORMATION
  Report Type: 
  Country: None (occurrence: None)
  Receive Date: 20040823
  Receipt Date: 20040809
  Transmission Date: 20050211
  Serious: Yes (Other)
  Sender: FDA-Public Use
  Company Number: 2004054655

PATIENT
  Sex: Female

DRUGS (1)
  1. ZOLOFT [Suspect]
     Indication: ILL-DEFINED DISORDER
     Dosage: ORAL
     Route: 048
     Dates: start: 20040804, end: 20040808

REACTIONS (5)
  - ABNORMAL BEHAVIOUR [None]
  - AGNOSIA [None]
  - CRYING [None]
  - INCOHERENT [None]
  - NEGLECT OF PERSONAL APPEARANCE [None]
